FAERS Safety Report 19577610 (Version 3)
Quarter: 2021Q3

REPORT INFORMATION
  Report Type: Spontaneous
  Country: US (occurrence: US)
  Receive Date: 20210719
  Receipt Date: 20210826
  Transmission Date: 20211014
  Serious: No
  Sender: FDA-Public Use
  Company Number: US-GLAXOSMITHKLINE-US2021151949

PATIENT
  Sex: Female

DRUGS (2)
  1. ZEJULA [Suspect]
     Active Substance: NIRAPARIB
     Dosage: 200 MG, QD
     Route: 048
  2. ZEJULA [Suspect]
     Active Substance: NIRAPARIB
     Indication: OVARIAN CANCER
     Dosage: 200 MG, QD
     Route: 048
     Dates: start: 20210702

REACTIONS (21)
  - Abdominal pain upper [Unknown]
  - Abdominal distension [Unknown]
  - White blood cell count increased [Unknown]
  - Dysstasia [Unknown]
  - Pruritus [Unknown]
  - Haemoglobin decreased [Unknown]
  - Fatigue [Unknown]
  - Dyspnoea [Unknown]
  - Paraesthesia [Unknown]
  - Constipation [Not Recovered/Not Resolved]
  - Arthralgia [Unknown]
  - Muscle tightness [Unknown]
  - Dysphagia [Unknown]
  - Asthenia [Unknown]
  - Asthma [Unknown]
  - Full blood count decreased [Unknown]
  - Malaise [Unknown]
  - Platelet count decreased [Unknown]
  - Respiratory rate decreased [Unknown]
  - Pain in extremity [Unknown]
  - Gait disturbance [Unknown]
